FAERS Safety Report 18488496 (Version 1)
Quarter: 2020Q4

REPORT INFORMATION
  Report Type: Spontaneous
  Country: US (occurrence: US)
  Receive Date: 20201111
  Receipt Date: 20201111
  Transmission Date: 20210114
  Serious: No
  Sender: FDA-Public Use
  Company Number: US-TEVA-2020-US-1847139

PATIENT
  Age: 87 Year
  Sex: Male
  Weight: 60.33 kg

DRUGS (2)
  1. ALBUTEROL SULFATE HFA [Suspect]
     Active Substance: ALBUTEROL SULFATE
     Indication: DYSPNOEA
     Route: 065
     Dates: start: 202009
  2. RESPIMAT [Concomitant]
     Dosage: 2 WHIFFS A DAY FIRST THING IN THE MORNING
     Route: 065

REACTIONS (3)
  - Product taste abnormal [Not Recovered/Not Resolved]
  - Dry mouth [Not Recovered/Not Resolved]
  - Inappropriate schedule of product administration [Unknown]

NARRATIVE: CASE EVENT DATE: 2020
